FAERS Safety Report 17620273 (Version 1)
Quarter: 2020Q2

REPORT INFORMATION
  Report Type: Spontaneous
  Country: FR (occurrence: FR)
  Receive Date: 20200403
  Receipt Date: 20200403
  Transmission Date: 20200713
  Serious: Yes (Life-Threatening)
  Sender: FDA-Public Use
  Company Number: FR-SUN PHARMACEUTICAL INDUSTRIES LTD-2020RR-242678

PATIENT
  Age: 74 Year
  Sex: Female
  Weight: 39 kg

DRUGS (4)
  1. MIRTAZAPINE. [Suspect]
     Active Substance: MIRTAZAPINE
     Indication: POISONING DELIBERATE
     Dosage: 285 MILLIGRAM, IN TOTAL
     Route: 048
     Dates: start: 20200219, end: 20200219
  2. LORMETAZEPAM [Suspect]
     Active Substance: LORMETAZEPAM
     Indication: POISONING DELIBERATE
     Dosage: 84 MILLIGRAM, IN TOTAL
     Route: 048
     Dates: start: 20200219, end: 20200219
  3. CLOMIPRAMINE (CHLORHYDRATE DE) [Suspect]
     Active Substance: CLOMIPRAMINE HYDROCHLORIDE
     Indication: POISONING DELIBERATE
     Dosage: 250 MILLIGRAM, IN TOTAL
     Route: 048
     Dates: start: 20200219, end: 20200219
  4. ESTIMA 100 MG, CAPSULE MOLLE ORALE OU VAGINALE [Suspect]
     Active Substance: PROGESTERONE
     Indication: POISONING DELIBERATE
     Dosage: 10 DOSAGE FORM, IN TOTAL
     Route: 048
     Dates: start: 20200219, end: 20200219

REACTIONS (4)
  - Oxygen saturation decreased [Recovered/Resolved]
  - Coma [Recovered/Resolved]
  - Vomiting [Recovered/Resolved]
  - Tachycardia [Recovered/Resolved]

NARRATIVE: CASE EVENT DATE: 20200219
